FAERS Safety Report 5855336-4 (Version None)
Quarter: 2008Q3

REPORT INFORMATION
  Report Type: 
  Country: None (occurrence: None)
  Receive Date: 20080821
  Receipt Date: 20080806
  Transmission Date: 20090109
  Serious: Yes (Other)
  Sender: FDA-Public Use
  Company Number: ALL1-2008-02217

PATIENT
  Age: 27 Year
  Sex: Male

DRUGS (1)
  1. VYVANSE [Suspect]
     Dates: start: 20080101

REACTIONS (1)
  - PEYRONIE'S DISEASE [None]
